FAERS Safety Report 23085040 (Version 2)
Quarter: 2023Q4

REPORT INFORMATION
  Report Type: Spontaneous
  Country: US (occurrence: None)
  Receive Date: 20231019
  Receipt Date: 20231130
  Transmission Date: 20240109
  Serious: No
  Sender: FDA-Public Use
  Company Number: 2023A227484

PATIENT

DRUGS (1)
  1. IMJUDO [Suspect]
     Active Substance: TREMELIMUMAB\TREMELIMUMAB-ACTL
     Indication: Lung neoplasm malignant
     Dosage: UNKNOWN
     Route: 042

REACTIONS (1)
  - Colitis [Unknown]
